FAERS Safety Report 9971320 (Version 1)
Quarter: 2014Q1

REPORT INFORMATION
  Report Type: Spontaneous
  Country: US (occurrence: None)
  Receive Date: 20140127
  Receipt Date: 20140127
  Transmission Date: 20141002
  Serious: Yes (Hospitalization)
  Sender: FDA-Public Use
  Company Number: 1210370

PATIENT
  Age: 37 Year
  Sex: Female

DRUGS (2)
  1. ACTILYSE [Suspect]
     Indication: CEREBRAL ARTERY OCCLUSION
     Route: 042
  2. SUMATRIPTAN [Concomitant]

REACTIONS (2)
  - Haemorrhage intracranial [None]
  - Drug ineffective [None]
